FAERS Safety Report 22529575 (Version 5)
Quarter: 2023Q4

REPORT INFORMATION
  Report Type: Report from Study
  Country: US (occurrence: US)
  Receive Date: 20230607
  Receipt Date: 20231228
  Transmission Date: 20240109
  Serious: Yes (Other)
  Sender: FDA-Public Use
  Company Number: US-HORIZON THERAPEUTICS-HZN-2023-004180

PATIENT

DRUGS (2)
  1. PENNSAID [Suspect]
     Active Substance: DICLOFENAC SODIUM
     Indication: Arthralgia
     Dosage: 2 PUMPS BID, PACKAGING SIZE: 40MG
     Route: 061
     Dates: start: 20200311
  2. PENNSAID [Suspect]
     Active Substance: DICLOFENAC SODIUM
     Indication: Osteoarthritis
     Dosage: 40 MG, BID (2 PUMPS TWICE A DAY, PACKAGING SIZE:112)2 PUMPS TWICE A DAY, PACKAGING SIZE:112, DOSAGE:
     Route: 061
     Dates: start: 20200526

REACTIONS (11)
  - Diverticulitis [Unknown]
  - Abdominal discomfort [Unknown]
  - Irritable bowel syndrome [Unknown]
  - Back pain [Unknown]
  - Nausea [Unknown]
  - Feeling abnormal [Unknown]
  - Memory impairment [Unknown]
  - Joint dislocation [Not Recovered/Not Resolved]
  - Walking aid user [Unknown]
  - Nightmare [Unknown]
  - Anxiety [Unknown]

NARRATIVE: CASE EVENT DATE: 20230531
